FAERS Safety Report 4603847-1 (Version None)
Quarter: 2005Q1

REPORT INFORMATION
  Report Type: 
  Country: None (occurrence: None)
  Receive Date: 20050308
  Receipt Date: 20050222
  Transmission Date: 20050727
  Serious: No
  Sender: FDA-Public Use
  Company Number: US-2004-029797

PATIENT
  Age: 66 Year
  Sex: Female
  Weight: 65.3 kg

DRUGS (16)
  1. CLIMARA [Suspect]
     Indication: HORMONE REPLACEMENT THERAPY
     Dosage: TRANSDERMAL
     Route: 062
  2. PREMPRO [Suspect]
     Indication: HORMONE REPLACEMENT THERAPY
     Dosage: ORAL
     Route: 048
  3. PREMARIN [Suspect]
     Indication: HORMONE REPLACEMENT THERAPY
     Dosage: 0.625 MG, ORAL
     Route: 048
     Dates: start: 19901126, end: 20001101
  4. PROVERA [Suspect]
     Indication: HORMONE REPLACEMENT THERAPY
     Dosage: SEE IMAGE
     Dates: end: 20001101
  5. PROVERA [Suspect]
     Indication: HORMONE REPLACEMENT THERAPY
     Dosage: SEE IMAGE
     Dates: start: 19901126
  6. OGEN [Suspect]
     Indication: HORMONE REPLACEMENT THERAPY
  7. ESTRADERM [Suspect]
     Indication: HORMONE REPLACEMENT THERAPY
     Dosage: 0.05 MG, TRANSDERMAL
     Route: 062
     Dates: start: 19920311, end: 19930311
  8. CYCRIN [Suspect]
     Indication: HORMONE REPLACEMENT THERAPY
     Dosage: 2.5 MG
     Dates: start: 19971117, end: 19971217
  9. MEDROXYPROGESTERONE ACETATE [Suspect]
     Indication: HORMONE REPLACEMENT THERAPY
  10. ESTROGEN NOS (ESTROGEN NOS) [Suspect]
     Indication: HORMONE REPLACEMENT THERAPY
  11. PREMARIN H-C VAGINAL CREAM [Suspect]
     Dosage: 2%, VAGINAL
     Route: 067
     Dates: start: 19920311, end: 19970323
  12. PREDNISONE [Concomitant]
  13. ACTIGALL [Concomitant]
  14. SULINDAC [Concomitant]
  15. HYDROCHLOROTHIAZIDE [Concomitant]
  16. SULFASALAZINE [Concomitant]

REACTIONS (2)
  - BREAST CANCER FEMALE [None]
  - DEFORMITY [None]
